FAERS Safety Report 13538633 (Version 1)
Quarter: 2017Q2

REPORT INFORMATION
  Report Type: Spontaneous
  Country: NL (occurrence: NL)
  Receive Date: 20170512
  Receipt Date: 20170512
  Transmission Date: 20170830
  Serious: Yes (Other)
  Sender: FDA-Public Use
  Company Number: NL-BION-006278

PATIENT
  Age: 78 Year
  Sex: Female

DRUGS (2)
  1. VALPROIC ACID UNKNOWN PRODUCT [Suspect]
     Active Substance: VALPROIC ACID
     Indication: MANIA
     Dosage: DOSE: 20 MG/KG
  2. HALOPERIDOL. [Concomitant]
     Active Substance: HALOPERIDOL
     Indication: MANIA

REACTIONS (6)
  - Toxicity to various agents [Recovering/Resolving]
  - Mental status changes [Recovering/Resolving]
  - Sedation [Recovered/Resolved]
  - Fall [Unknown]
  - Vertigo [Recovered/Resolved]
  - Off label use [Unknown]
